FAERS Safety Report 4865777-X (Version None)
Quarter: 2005Q4

REPORT INFORMATION
  Report Type: 
  Country: None (occurrence: None)
  Receive Date: 20051223
  Receipt Date: 20051215
  Transmission Date: 20060501
  Serious: Yes (Hospitalization, Other)
  Sender: FDA-Public Use
  Company Number: PHBS2005IT18719

PATIENT
  Age: 44 Year
  Sex: Female

DRUGS (7)
  1. TAMOXIFEN [Concomitant]
     Dosage: 20 MG/D
     Route: 065
     Dates: start: 20050801, end: 20051114
  2. FASLODEX [Concomitant]
     Route: 065
  3. ZOMETA [Suspect]
     Indication: HYPERCALCAEMIA OF MALIGNANCY
     Dosage: 4 MG, EVERY 21 DAYS (17 INFUSIONS)
     Route: 042
     Dates: start: 20040517, end: 20050427
  4. CISPLATIN [Concomitant]
     Dosage: 63 MG EVERY 21 DAYS (5 CYCLES)
     Route: 065
     Dates: start: 20040517, end: 20040809
  5. EPIRUBICIN [Concomitant]
     Dosage: 128 EVERY 21 DAYS (5 CYCLES)
     Route: 065
     Dates: start: 20040517, end: 20040809
  6. VINORELBINE TARTRATE [Concomitant]
     Dosage: 32 MG EVERY 21 DAYS (5 CYCLES)
     Route: 065
     Dates: start: 20040517, end: 20040809
  7. FEMARA [Concomitant]
     Dosage: 1 TABLET/D
     Route: 048
     Dates: start: 20040801, end: 20050726

REACTIONS (2)
  - DEEP VEIN THROMBOSIS [None]
  - PAIN IN JAW [None]
